FAERS Safety Report 13410577 (Version 2)
Quarter: 2017Q4

REPORT INFORMATION
  Report Type: Spontaneous
  Country: US (occurrence: US)
  Receive Date: 20170406
  Receipt Date: 20171123
  Transmission Date: 20180320
  Serious: No
  Sender: FDA-Public Use
  Company Number: US-JNJFOC-20170300265

PATIENT
  Sex: Male

DRUGS (15)
  1. RISPERIDONE. [Suspect]
     Active Substance: RISPERIDONE
     Indication: AUTISM SPECTRUM DISORDER
     Dosage: VARYING DOSE OF 1 MG TO 4 MG
     Route: 048
     Dates: start: 20100408, end: 20120307
  2. RISPERIDONE. [Suspect]
     Active Substance: RISPERIDONE
     Indication: AUTISM SPECTRUM DISORDER
     Route: 048
     Dates: start: 20100408, end: 20120815
  3. RISPERDAL [Suspect]
     Active Substance: RISPERIDONE
     Indication: INTERMITTENT EXPLOSIVE DISORDER
     Route: 048
     Dates: start: 20030109, end: 20030919
  4. RISPERDAL [Suspect]
     Active Substance: RISPERIDONE
     Indication: INTERMITTENT EXPLOSIVE DISORDER
     Route: 048
     Dates: start: 20100408, end: 20120815
  5. RISPERDAL [Suspect]
     Active Substance: RISPERIDONE
     Indication: AUTISM SPECTRUM DISORDER
     Route: 048
     Dates: start: 20101208, end: 20120815
  6. RISPERDAL [Suspect]
     Active Substance: RISPERIDONE
     Indication: AUTISM SPECTRUM DISORDER
     Route: 048
     Dates: start: 20100408, end: 20120815
  7. RISPERDAL [Suspect]
     Active Substance: RISPERIDONE
     Indication: AUTISM SPECTRUM DISORDER
     Route: 048
     Dates: start: 20030109, end: 20030919
  8. RISPERIDONE. [Suspect]
     Active Substance: RISPERIDONE
     Indication: INTERMITTENT EXPLOSIVE DISORDER
     Route: 048
     Dates: start: 20030109, end: 20030919
  9. RISPERDAL [Suspect]
     Active Substance: RISPERIDONE
     Indication: AUTISM SPECTRUM DISORDER
     Route: 048
     Dates: start: 20030109, end: 20030919
  10. RISPERIDONE. [Suspect]
     Active Substance: RISPERIDONE
     Indication: INTERMITTENT EXPLOSIVE DISORDER
     Dosage: VARYING DOSE OF 1 MG TO 4 MG
     Route: 048
     Dates: start: 20100408, end: 20120307
  11. RISPERIDONE. [Suspect]
     Active Substance: RISPERIDONE
     Indication: INTERMITTENT EXPLOSIVE DISORDER
     Route: 048
     Dates: start: 20100408, end: 20120815
  12. RISPERIDONE. [Suspect]
     Active Substance: RISPERIDONE
     Indication: AUTISM SPECTRUM DISORDER
     Route: 048
     Dates: start: 20030109, end: 20030919
  13. RISPERDAL [Suspect]
     Active Substance: RISPERIDONE
     Indication: INTERMITTENT EXPLOSIVE DISORDER
     Route: 048
     Dates: start: 20101208, end: 20120815
  14. RISPERDAL [Suspect]
     Active Substance: RISPERIDONE
     Indication: INTERMITTENT EXPLOSIVE DISORDER
     Route: 048
     Dates: start: 20030109, end: 20030919
  15. RISPERDAL M-TAB [Suspect]
     Active Substance: RISPERIDONE
     Indication: PRODUCT USED FOR UNKNOWN INDICATION
     Route: 048

REACTIONS (2)
  - Gynaecomastia [Unknown]
  - Emotional disorder [Unknown]
